FAERS Safety Report 21896980 (Version 1)
Quarter: 2023Q1

REPORT INFORMATION
  Report Type: Spontaneous
  Country: US (occurrence: US)
  Receive Date: 20230123
  Receipt Date: 20230123
  Transmission Date: 20230417
  Serious: Yes (Other)
  Sender: FDA-Public Use
  Company Number: US-STRIDES ARCOLAB LIMITED-2022SP008052

PATIENT
  Age: 40 Year
  Sex: Male

DRUGS (4)
  1. LIDOCAINE [Suspect]
     Active Substance: LIDOCAINE
     Indication: Anal spasm
     Dosage: UNK
     Route: 061
  2. LIDOCAINE [Suspect]
     Active Substance: LIDOCAINE
     Indication: Rectal tenesmus
  3. DILTIAZEM [Suspect]
     Active Substance: DILTIAZEM
     Indication: Anal spasm
     Dosage: UNK
     Route: 061
  4. DILTIAZEM [Suspect]
     Active Substance: DILTIAZEM
     Indication: Rectal tenesmus

REACTIONS (1)
  - Drug ineffective for unapproved indication [Unknown]
